FAERS Safety Report 10415122 (Version 7)
Quarter: 2015Q2

REPORT INFORMATION
  Report Type: Spontaneous
  Country: US (occurrence: US)
  Receive Date: 20140828
  Receipt Date: 20150521
  Transmission Date: 20150821
  Serious: Yes (Hospitalization, Other)
  Sender: FDA-Public Use
  Company Number: US-AMGEN-USASP2014064633

PATIENT
  Age: 54 Year
  Sex: Female

DRUGS (4)
  1. ATIVAN [Concomitant]
     Active Substance: LORAZEPAM
     Indication: PRODUCT USED FOR UNKNOWN INDICATION
     Route: 065
  2. PROLIA [Suspect]
     Active Substance: DENOSUMAB
     Indication: OSTEOPOROSIS POSTMENOPAUSAL
     Dosage: 60 MG, Q6MO
     Route: 058
     Dates: start: 20140730
  3. VITAMIN D                          /00107901/ [Concomitant]
     Active Substance: ERGOCALCIFEROL
     Indication: PRODUCT USED FOR UNKNOWN INDICATION
     Dosage: UNK
     Route: 065
  4. ZOLOFT [Concomitant]
     Active Substance: SERTRALINE HYDROCHLORIDE
     Indication: PRODUCT USED FOR UNKNOWN INDICATION
     Dosage: UNK
     Route: 065

REACTIONS (23)
  - Pain [Unknown]
  - Headache [Unknown]
  - Urinary tract infection [Not Recovered/Not Resolved]
  - Toothache [Unknown]
  - Arthralgia [Unknown]
  - Pain in extremity [Unknown]
  - Nervous system disorder [Unknown]
  - Oxygen saturation abnormal [Unknown]
  - Feeling abnormal [Unknown]
  - Activities of daily living impaired [Unknown]
  - Dyspnoea [Not Recovered/Not Resolved]
  - Cough [Not Recovered/Not Resolved]
  - Groin pain [Not Recovered/Not Resolved]
  - Cystitis [Unknown]
  - Erythema [Unknown]
  - Chest pain [Unknown]
  - Influenza like illness [Unknown]
  - Back pain [Unknown]
  - Mobility decreased [Unknown]
  - Malaise [Unknown]
  - Crying [Unknown]
  - Pain in jaw [Not Recovered/Not Resolved]
  - Myalgia [Not Recovered/Not Resolved]

NARRATIVE: CASE EVENT DATE: 20140730
